FAERS Safety Report 5407883-7 (Version None)
Quarter: 2007Q3

REPORT INFORMATION
  Report Type: 
  Country: None (occurrence: None)
  Receive Date: 20070807
  Receipt Date: 20070801
  Transmission Date: 20080115
  Serious: Yes (Hospitalization)
  Sender: FDA-Public Use
  Company Number: US-MERCK-0708USA00174

PATIENT
  Age: 21 Year
  Sex: Male
  Weight: 30 kg

DRUGS (10)
  1. PEPCID [Suspect]
     Route: 042
     Dates: start: 20070701
  2. KEPPRA [Suspect]
     Indication: CONVULSION
     Route: 042
     Dates: start: 20070712
  3. FLUCONAZOLE [Suspect]
     Route: 042
     Dates: start: 20070701
  4. NEXIUM [Suspect]
     Route: 042
     Dates: start: 20070701
  5. ATIVAN [Suspect]
     Indication: AGITATION
     Route: 065
     Dates: start: 20070701
  6. CLONIDINE [Suspect]
     Route: 065
  7. METHADONE HCL [Suspect]
     Indication: DRUG WITHDRAWAL SYNDROME
     Route: 048
     Dates: start: 20070701
  8. DIAZEPAM [Suspect]
     Indication: AGITATION
     Route: 042
     Dates: start: 20070701
  9. DEMEROL [Suspect]
     Indication: PAIN
     Route: 065
     Dates: start: 20070701
  10. PAXIL [Suspect]
     Route: 048

REACTIONS (2)
  - DEVICE OCCLUSION [None]
  - PANCREATITIS [None]
